FAERS Safety Report 14193628 (Version 1)
Quarter: 2017Q4

REPORT INFORMATION
  Report Type: Spontaneous
  Country: US (occurrence: US)
  Receive Date: 20171115
  Receipt Date: 20171115
  Transmission Date: 20180321
  Serious: Yes (Hospitalization)
  Sender: FDA-Public Use
  Company Number: US-VIFOR (INTERNATIONAL) INC.-VIT-2017-12286

PATIENT
  Age: 73 Year
  Sex: Male

DRUGS (25)
  1. BISACODYL. [Concomitant]
     Active Substance: BISACODYL
  2. MILK OF MAGNESIA [Concomitant]
     Active Substance: MAGNESIUM HYDROXIDE
  3. SODIUM BICARBONATE. [Concomitant]
     Active Substance: SODIUM BICARBONATE
  4. HYDRAZINE SULFATE [Concomitant]
     Active Substance: HYDRAZINE SULFATE
  5. MORPHINE SULFATE. [Concomitant]
     Active Substance: MORPHINE SULFATE
  6. COLECALCIFEROL [Concomitant]
     Active Substance: CHOLECALCIFEROL
  7. FLORASTOR [Concomitant]
     Active Substance: SACCHAROMYCES CEREVISIAE
  8. ONDANSETRON HYDROCHLORIDE. [Concomitant]
     Active Substance: ONDANSETRON HYDROCHLORIDE
  9. TAMSULOSIN HYDROCHLORIDE. [Concomitant]
     Active Substance: TAMSULOSIN HYDROCHLORIDE
  10. METOPROLOL TARTRATE. [Concomitant]
     Active Substance: METOPROLOL TARTRATE
  11. SENNA [Concomitant]
     Active Substance: SENNA LEAF\SENNOSIDES\SENNOSIDES A AND B
  12. ALUMINIUM~~MAGNESIUM~~SIMETICONE [Concomitant]
  13. VELTASSA [Suspect]
     Active Substance: PATIROMER
     Indication: HYPERKALAEMIA
     Route: 048
     Dates: start: 20171019, end: 201711
  14. ASCORBIC ACID. [Concomitant]
     Active Substance: ASCORBIC ACID
  15. CLOPIDOGREL BISULFATE. [Concomitant]
     Active Substance: CLOPIDOGREL BISULFATE
  16. NORCO [Concomitant]
     Active Substance: ACETAMINOPHEN\HYDROCODONE BITARTRATE
  17. PANTOPRAZOLE SODIUM SESQUIHYDRATE [Concomitant]
     Active Substance: PANTOPRAZOLE SODIUM
  18. ATORVASTATIN CALCIUM. [Concomitant]
     Active Substance: ATORVASTATIN CALCIUM
  19. GABAPENTIN. [Concomitant]
     Active Substance: GABAPENTIN
  20. HEPARIN SODIUM. [Concomitant]
     Active Substance: HEPARIN SODIUM
  21. ASPIRIN. [Concomitant]
     Active Substance: ASPIRIN
  22. FERROUS SULFATE. [Concomitant]
     Active Substance: FERROUS SULFATE
  23. ACETAMINOPHEN. [Concomitant]
     Active Substance: ACETAMINOPHEN
  24. IPRATROPIUM BROMIDE. [Concomitant]
     Active Substance: IPRATROPIUM BROMIDE
  25. FLEET ENEMA [Concomitant]
     Active Substance: SODIUM PHOSPHATE, DIBASIC\SODIUM PHOSPHATE, MONOBASIC

REACTIONS (1)
  - Sepsis [Unknown]

NARRATIVE: CASE EVENT DATE: 20171104
